FAERS Safety Report 12774479 (Version 1)
Quarter: 2016Q3

REPORT INFORMATION
  Report Type: Spontaneous
  Country: US (occurrence: US)
  Receive Date: 20160923
  Receipt Date: 20160923
  Transmission Date: 20161109
  Serious: No
  Sender: FDA-Public Use
  Company Number: US-ASTRAZENECA-2016SE96648

PATIENT
  Sex: Female

DRUGS (1)
  1. PULMICORT FLEXHALER [Suspect]
     Active Substance: BUDESONIDE
     Dosage: 1 PUFF TWICE A DAY,
     Route: 055
     Dates: start: 20160908

REACTIONS (1)
  - Cheilitis [Unknown]

NARRATIVE: CASE EVENT DATE: 20160909
